FAERS Safety Report 10557620 (Version 4)
Quarter: 2015Q2

REPORT INFORMATION
  Report Type: Spontaneous
  Country: US (occurrence: US)
  Receive Date: 20141031
  Receipt Date: 20150529
  Transmission Date: 20150821
  Serious: Yes (Hospitalization)
  Sender: FDA-Public Use
  Company Number: US-BAYER-2014-159943

PATIENT
  Age: 28 Year
  Sex: Female

DRUGS (3)
  1. MIRENA [Suspect]
     Active Substance: LEVONORGESTREL
     Dosage: 20 MCG/24HR, CONT
     Route: 015
     Dates: start: 200901, end: 20091019
  2. FERROUS SULFATE [Concomitant]
     Active Substance: FERROUS SULFATE\FERROUS SULFATE, DRIED
     Dosage: 324 MG, DAILY
     Route: 048
  3. MEGACE [Concomitant]
     Active Substance: MEGESTROL ACETATE
     Dosage: DAILY

REACTIONS (14)
  - Abdominal pain [None]
  - Emotional distress [None]
  - Depression [None]
  - Internal injury [None]
  - Fear [None]
  - Pelvic pain [None]
  - Pain [None]
  - Injury [None]
  - Anxiety [None]
  - Uterine perforation [None]
  - Genital haemorrhage [None]
  - Depressed mood [None]
  - Device issue [None]
  - Medical device discomfort [None]

NARRATIVE: CASE EVENT DATE: 200908
